FAERS Safety Report 7201693-6 (Version None)
Quarter: 2010Q4

REPORT INFORMATION
  Report Type: 
  Country: None (occurrence: None)
  Receive Date: 20101216
  Receipt Date: 20101123
  Transmission Date: 20110411
  Serious: Yes (Other)
  Sender: FDA-Public Use
  Company Number: FKO201000522

PATIENT
  Age: 7 Year
  Sex: Female

DRUGS (7)
  1. IFOSFAMIDE [Suspect]
     Indication: NEPHROBLASTOMA
     Dosage: (1.5 G/M2/DAY FOR 3 DAYS
  2. DACTINOMYCIN (DACTINOMYCIN) (DACTINOMYCIN) [Concomitant]
  3. VINCRISTINE [Concomitant]
  4. DOXORUBICIN HCL [Concomitant]
  5. ETOPOSIDE [Concomitant]
  6. CARBOPLATIN [Concomitant]
  7. MESNA (MESNA) (MESNA) [Concomitant]

REACTIONS (1)
  - PANCREATITIS ACUTE [None]
